FAERS Safety Report 4311107-1 (Version None)
Quarter: 2004Q1

REPORT INFORMATION
  Report Type: 
  Country: None (occurrence: None)
  Receive Date: 20040302
  Receipt Date: 20040302
  Transmission Date: 20041129
  Serious: Yes (Other)
  Sender: FDA-Public Use
  Company Number: None

PATIENT
  Age: 75 Year
  Sex: Female

DRUGS (9)
  1. METFORMIN HCL [Suspect]
     Indication: DIABETES MELLITUS
     Dosage: 1 TWICE DAILY BY MOUTH
  2. NADOLOL [Concomitant]
  3. NIASPAN ER [Concomitant]
  4. PRILOSEC [Concomitant]
  5. ALTACE [Concomitant]
  6. SYNTHROID [Concomitant]
  7. AVAPRO [Concomitant]
  8. NEURONTIN [Concomitant]
  9. VICODIN [Concomitant]

REACTIONS (5)
  - DRY MOUTH [None]
  - DRY SKIN [None]
  - FATIGUE [None]
  - TREMOR [None]
  - URINE OUTPUT DECREASED [None]
